FAERS Safety Report 8127186-X (Version None)
Quarter: 2012Q1

REPORT INFORMATION
  Report Type: 
  Country: None (occurrence: None)
  Receive Date: 20120210
  Receipt Date: 20120201
  Transmission Date: 20120608
  Serious: Yes (Hospitalization, Other)
  Sender: FDA-Public Use
  Company Number: US-PURDUE-USA-2012-0080592

PATIENT
  Sex: Male
  Weight: 69.841 kg

DRUGS (5)
  1. MOBIC [Concomitant]
     Indication: BACK PAIN
     Dosage: 7.5 MG, BID
  2. OXYCONTIN [Suspect]
     Indication: PAIN
     Dosage: 120 MG, BID
     Route: 048
  3. OXYCONTIN [Suspect]
     Dosage: 120 MG, Q12H
     Route: 048
     Dates: start: 20120118
  4. OXYCODONE HCL [Concomitant]
     Indication: LUMBAR SPINAL STENOSIS
     Dosage: 30 MG, Q4H
  5. XANAX [Concomitant]
     Indication: ANXIETY
     Dosage: 1 MG, BID

REACTIONS (4)
  - FACIAL BONES FRACTURE [None]
  - ROAD TRAFFIC ACCIDENT [None]
  - HYPOAESTHESIA [None]
  - JAW FRACTURE [None]
